FAERS Safety Report 6060205-3 (Version None)
Quarter: 2009Q1

REPORT INFORMATION
  Report Type: 
  Country: None (occurrence: None)
  Receive Date: 20090128
  Receipt Date: 20090123
  Transmission Date: 20090719
  Serious: Yes (Death)
  Sender: FDA-Public Use
  Company Number: 2009SP001710

PATIENT
  Sex: Female

DRUGS (1)
  1. PROVENTIL [Suspect]
     Indication: DRUG USE FOR UNKNOWN INDICATION
     Dosage: INH
     Route: 055

REACTIONS (2)
  - CHILD MALTREATMENT SYNDROME [None]
  - DRUG PRESCRIBING ERROR [None]
